FAERS Safety Report 16375280 (Version 2)
Quarter: 2019Q2

REPORT INFORMATION
  Report Type: Spontaneous
  Country: FR (occurrence: FR)
  Receive Date: 20190531
  Receipt Date: 20190621
  Transmission Date: 20190711
  Serious: Yes (Other)
  Sender: FDA-Public Use
  Company Number: FR-ASTRAZENECA-2019SE77692

PATIENT
  Age: 52 Year
  Sex: Male
  Weight: 108 kg

DRUGS (10)
  1. ESOMEPRAZOLE. [Suspect]
     Active Substance: ESOMEPRAZOLE MAGNESIUM
     Indication: IMMUNOSUPPRESSANT DRUG THERAPY
     Route: 048
  2. CLORAZEPATE [Concomitant]
     Active Substance: CLORAZEPATE DIPOTASSIUM
     Route: 065
  3. MYCOPHENOLATE MOFETIL. [Suspect]
     Active Substance: MYCOPHENOLATE MOFETIL
     Indication: IMMUNOSUPPRESSANT DRUG THERAPY
     Route: 065
  4. AMITRIPTYLINE [Suspect]
     Active Substance: AMITRIPTYLINE
     Indication: IMMUNOSUPPRESSANT DRUG THERAPY
     Route: 065
  5. PREDNISONE. [Suspect]
     Active Substance: PREDNISONE
     Indication: IMMUNOSUPPRESSANT DRUG THERAPY
     Route: 065
  6. MIDAZOLAM [Concomitant]
     Active Substance: MIDAZOLAM HYDROCHLORIDE
     Route: 065
  7. CYAMEMAZINE [Concomitant]
     Active Substance: CYAMEMAZINE
     Route: 065
  8. HALOPERIDOL. [Concomitant]
     Active Substance: HALOPERIDOL
     Route: 065
  9. ALLOPURINOL. [Suspect]
     Active Substance: ALLOPURINOL
     Indication: IMMUNOSUPPRESSANT DRUG THERAPY
     Route: 065
  10. LERCANIDIPINE [Suspect]
     Active Substance: LERCANIDIPINE
     Indication: IMMUNOSUPPRESSANT DRUG THERAPY
     Route: 065

REACTIONS (3)
  - Respiratory failure [Unknown]
  - Infection [Unknown]
  - Interstitial lung disease [Unknown]
